FAERS Safety Report 7033954-8 (Version None)
Quarter: 2010Q4

REPORT INFORMATION
  Report Type: 
  Country: None (occurrence: None)
  Receive Date: 20101005
  Receipt Date: 20100927
  Transmission Date: 20110411
  Serious: Yes (Life-Threatening, Hospitalization)
  Sender: FDA-Public Use
  Company Number: 019133

PATIENT
  Sex: Female

DRUGS (3)
  1. KEPPRA [Suspect]
     Dosage: (40 DF ORAL)
     Route: 048
     Dates: start: 20100917, end: 20100917
  2. TEGRETOL [Suspect]
     Dosage: (30 DF ORAL)
     Route: 048
     Dates: start: 20100917, end: 20100917
  3. EN (EN) [Suspect]
     Dosage: (20 ML ORAL)
     Route: 048
     Dates: start: 20100917, end: 20100917

REACTIONS (14)
  - ANTICONVULSANT DRUG LEVEL INCREASED [None]
  - BLOOD AMYLASE INCREASED [None]
  - BLOOD CALCIUM DECREASED [None]
  - BLOOD ETHANOL INCREASED [None]
  - BLOOD GLUCOSE INCREASED [None]
  - BLOOD PRESSURE SYSTOLIC DECREASED [None]
  - COMA [None]
  - DIALYSIS [None]
  - HAEMOGLOBIN DECREASED [None]
  - INCORRECT DOSE ADMINISTERED [None]
  - INTENTIONAL SELF-INJURY [None]
  - METABOLIC ACIDOSIS [None]
  - RHABDOMYOLYSIS [None]
  - SELF-MEDICATION [None]
